FAERS Safety Report 25072084 (Version 2)
Quarter: 2025Q3

REPORT INFORMATION
  Report Type: Spontaneous
  Country: US (occurrence: US)
  Receive Date: 20250313
  Receipt Date: 20250810
  Transmission Date: 20251021
  Serious: No
  Sender: ALEXION PHARMACEUTICALS
  Company Number: US-AstraZeneca-CH-00823963A

PATIENT
  Age: 77 Year
  Sex: Female
  Weight: 98.883 kg

DRUGS (6)
  1. FASENRA [Suspect]
     Active Substance: BENRALIZUMAB
     Indication: Asthma
     Dosage: 30 MILLIGRAM, Q8W
     Dates: start: 20240329
  2. ALBUTEROL [Concomitant]
     Active Substance: ALBUTEROL
     Route: 065
  3. CETIRIZINE [Concomitant]
     Active Substance: CETIRIZINE HYDROCHLORIDE
     Route: 065
  4. GABAPENTIN [Concomitant]
     Active Substance: GABAPENTIN
     Route: 065
  5. METFORMIN [Concomitant]
     Active Substance: METFORMIN HYDROCHLORIDE
     Route: 065
  6. MONTELUKAST [Concomitant]
     Active Substance: MONTELUKAST
     Route: 065

REACTIONS (3)
  - Nasopharyngitis [Not Recovered/Not Resolved]
  - Asthma [Not Recovered/Not Resolved]
  - Asthenia [Not Recovered/Not Resolved]

NARRATIVE: CASE EVENT DATE: 20240201
